FAERS Safety Report 4480471-5 (Version None)
Quarter: 2004Q4

REPORT INFORMATION
  Report Type: 
  Country: None (occurrence: None)
  Receive Date: 20041018
  Receipt Date: 20041004
  Transmission Date: 20050328
  Serious: Yes (Other)
  Sender: FDA-Public Use
  Company Number: S04-USA-02963-01

PATIENT
  Age: 74 Year
  Sex: Female
  Weight: 47.1741 kg

DRUGS (6)
  1. NAMENDA [Suspect]
     Indication: DEMENTIA ALZHEIMER'S TYPE
     Dosage: 5 MG QD PO
     Route: 048
     Dates: start: 20040329, end: 20040405
  2. ARICEPT [Suspect]
     Indication: DEMENTIA ALZHEIMER'S TYPE
     Dosage: 10 MG QD
     Dates: start: 20020822
  3. TRAZODONE HCL [Concomitant]
  4. ZOLOFT [Concomitant]
  5. CARDIZEM CD [Concomitant]
  6. FOSAMAX [Concomitant]

REACTIONS (4)
  - CONDITION AGGRAVATED [None]
  - DELUSION [None]
  - DEMENTIA [None]
  - FALL [None]
